FAERS Safety Report 7100032-9 (Version None)
Quarter: 2010Q4

REPORT INFORMATION
  Report Type: 
  Country: None (occurrence: None)
  Receive Date: 20101112
  Receipt Date: 20100922
  Transmission Date: 20110411
  Serious: No
  Sender: FDA-Public Use
  Company Number: US-BAYER-201021692BCC

PATIENT
  Age: 83 Year
  Sex: Female
  Weight: 79 kg

DRUGS (3)
  1. ALEVE (CAPLET) [Suspect]
     Indication: PRODUCT USED FOR UNKNOWN INDICATION
     Dosage: TOTAL DAILY DOSE: 220 MG  UNIT DOSE: 220 MG
     Route: 048
     Dates: start: 20100921
  2. BUTAMIDE [Concomitant]
     Route: 065
  3. CARVEDILOL [Concomitant]
     Route: 065
     Dates: start: 20100918

REACTIONS (3)
  - HYPERSENSITIVITY [None]
  - LIP PAIN [None]
  - LIP SWELLING [None]
